FAERS Safety Report 9378318 (Version 1)
Quarter: 2013Q3

REPORT INFORMATION
  Report Type: Spontaneous
  Country: FR (occurrence: FR)
  Receive Date: 20130701
  Receipt Date: 20130701
  Transmission Date: 20140515
  Serious: Yes (Hospitalization)
  Sender: FDA-Public Use
  Company Number: FR-TEVA-416205ISR

PATIENT
  Age: 89 Year
  Sex: Female

DRUGS (7)
  1. FUROSEMIDE TEVA [Suspect]
     Indication: OEDEMA PERIPHERAL
     Dosage: 1 DOSAGE FORMS DAILY;
     Route: 042
  2. FORADIL 12 MICROGRAM [Concomitant]
     Dosage: POWDER FOR INHALATION
     Route: 055
  3. CIBACENE 10 MG [Concomitant]
     Dosage: SCORED COATED TABLET
     Route: 048
  4. FLIXOTIDE 250 MICROGRAMS/DOSE [Concomitant]
     Dosage: SUSPENSION FOR INHALATION IN PRESSURIZED BOTTLES
     Route: 055
  5. TEMESTA 2.5 MG [Concomitant]
     Dosage: SCORED TABLET
     Route: 048
  6. HYPERIUM 1 MG [Concomitant]
     Dosage: 2 DOSAGE FORMS DAILY;
  7. ADVIL 200MG [Concomitant]
     Route: 048

REACTIONS (2)
  - Dyspnoea [Recovered/Resolved]
  - Cardiac failure [Recovered/Resolved]
